FAERS Safety Report 15558011 (Version 2)
Quarter: 2018Q4

REPORT INFORMATION
  Report Type: Spontaneous
  Country: US (occurrence: US)
  Receive Date: 20181027
  Receipt Date: 20181108
  Transmission Date: 20190205
  Serious: No
  Sender: FDA-Public Use
  Company Number: US-009507513-1810USA007977

PATIENT
  Age: 25 Year
  Sex: Female
  Weight: 63.49 kg

DRUGS (2)
  1. NEXPLANON [Suspect]
     Active Substance: ETONOGESTREL
     Indication: CONTRACEPTION
     Dosage: 1 DF, UNK
     Route: 059
     Dates: start: 20170608
  2. METROGEL (METRONIDAZOLE) [Concomitant]
     Indication: PRODUCT USED FOR UNKNOWN INDICATION
     Dosage: 1 DOSAGE FORM, HS
     Route: 067
     Dates: start: 20170329

REACTIONS (6)
  - Menstruation irregular [Unknown]
  - Amenorrhoea [Unknown]
  - Vaginal haemorrhage [Recovered/Resolved]
  - Complication of device removal [Not Recovered/Not Resolved]
  - Device deployment issue [Not Recovered/Not Resolved]
  - Complication associated with device [Recovered/Resolved]

NARRATIVE: CASE EVENT DATE: 20170608
